FAERS Safety Report 16320925 (Version 1)
Quarter: 2019Q2

REPORT INFORMATION
  Report Type: Spontaneous
  Country: IE (occurrence: IE)
  Receive Date: 20190516
  Receipt Date: 20190516
  Transmission Date: 20190711
  Serious: Yes (Other)
  Sender: FDA-Public Use
  Company Number: IE-PFIZER INC-2019204303

PATIENT
  Age: 31 Year
  Sex: Female

DRUGS (7)
  1. CALCIUM [Concomitant]
     Active Substance: CALCIUM
  2. DOSTINEX [Suspect]
     Active Substance: CABERGOLINE
     Indication: INFERTILITY
     Dosage: 0.5 MG, ONE TABLET
     Route: 048
  3. ENTYVIO [Concomitant]
     Active Substance: VEDOLIZUMAB
     Dosage: 300 MG, UNK
     Route: 042
  4. DOSTINEX [Suspect]
     Active Substance: CABERGOLINE
     Indication: OVARIAN HYPERSTIMULATION SYNDROME
  5. CETROTIDE [CETRORELIX ACETATE] [Concomitant]
     Indication: OVARIAN HYPERSTIMULATION SYNDROME
     Route: 058
  6. INNOHEP [Concomitant]
     Active Substance: TINZAPARIN SODIUM
     Indication: OVARIAN HYPERSTIMULATION SYNDROME
     Dosage: 4500 IU, UNK
     Route: 058
  7. MEZAVANT XL [Concomitant]
     Active Substance: MESALAMINE

REACTIONS (6)
  - Nasal disorder [Recovered/Resolved]
  - Throat tightness [Recovered/Resolved]
  - Dyspnoea [Recovered/Resolved]
  - Diarrhoea [Recovered/Resolved]
  - Abdominal pain [Recovered/Resolved]
  - Swelling [Recovered/Resolved]

NARRATIVE: CASE EVENT DATE: 20190315
